FAERS Safety Report 14608563 (Version 1)
Quarter: 2018Q1

REPORT INFORMATION
  Report Type: Spontaneous
  Country: GB (occurrence: GB)
  Receive Date: 20180307
  Receipt Date: 20180307
  Transmission Date: 20180509
  Serious: Yes (Life-Threatening, Other)
  Sender: FDA-Public Use
  Company Number: GB-TEVA-2018-GB-865237

PATIENT
  Age: 55 Year
  Sex: Female

DRUGS (6)
  1. SPIRONOLACTONE. [Concomitant]
     Active Substance: SPIRONOLACTONE
  2. OCTREOTIDE. [Suspect]
     Active Substance: OCTREOTIDE
     Indication: CARCINOID SYNDROME
     Dosage: LAR 30MG EVERY TWO WEEKS
     Route: 030
  3. BISOPROLOL [Concomitant]
     Active Substance: BISOPROLOL
  4. WARFARIN [Interacting]
     Active Substance: WARFARIN
     Route: 065
     Dates: start: 201705
  5. CITALOPRAM HYDROCHLORIDE [Concomitant]
     Active Substance: CITALOPRAM HYDROCHLORIDE
  6. FLUCONAZOLE. [Interacting]
     Active Substance: FLUCONAZOLE
     Indication: CANDIDA INFECTION
     Dosage: STAT DOSE. TOTAL OF 6 DOSES POTENTIALLY.
     Route: 065

REACTIONS (2)
  - International normalised ratio increased [Unknown]
  - Drug interaction [Unknown]

NARRATIVE: CASE EVENT DATE: 201706
